FAERS Safety Report 20142026 (Version 2)
Quarter: 2022Q1

REPORT INFORMATION
  Report Type: Spontaneous
  Country: US (occurrence: US)
  Receive Date: 20211202
  Receipt Date: 20220126
  Transmission Date: 20220423
  Serious: Yes (Death, Hospitalization)
  Sender: FDA-Public Use
  Company Number: US-PFIZER INC-202101499381

PATIENT
  Age: 54 Year
  Sex: Male
  Weight: 89.81 kg

DRUGS (2)
  1. BRAFTOVI [Suspect]
     Active Substance: ENCORAFENIB
     Indication: Lung disorder
     Dosage: 450 MG
  2. MEKTOVI [Suspect]
     Active Substance: BINIMETINIB
     Indication: Lung disorder
     Dosage: UNK

REACTIONS (3)
  - Neoplasm progression [Fatal]
  - Pain [Fatal]
  - Off label use [Unknown]
